FAERS Safety Report 16316292 (Version 1)
Quarter: 2019Q2

REPORT INFORMATION
  Report Type: Spontaneous
  Country: RS (occurrence: RS)
  Receive Date: 20190515
  Receipt Date: 20190515
  Transmission Date: 20190711
  Serious: Yes (Other)
  Sender: FDA-Public Use
  Company Number: RS-CASPER PHARMA LLC-2019CAS000239

PATIENT
  Age: 18 Year
  Sex: Female

DRUGS (2)
  1. PENICILLIN G BENZATHINE [Suspect]
     Active Substance: PENICILLIN G BENZATHINE
     Indication: PYREXIA
     Dosage: UNK
     Route: 030
  2. PENICILLIN G BENZATHINE [Suspect]
     Active Substance: PENICILLIN G BENZATHINE
     Indication: PHARYNGOTONSILLITIS

REACTIONS (2)
  - Hypersensitivity vasculitis [Recovering/Resolving]
  - Cryofibrinogenaemia [Recovered/Resolved]
